FAERS Safety Report 8143134-0 (Version None)
Quarter: 2012Q1

REPORT INFORMATION
  Report Type: 
  Country: None (occurrence: None)
  Receive Date: 20120217
  Receipt Date: 20120213
  Transmission Date: 20120608
  Serious: No
  Sender: FDA-Public Use
  Company Number: US-PFIZER INC-2012039649

PATIENT
  Age: 90 Year
  Sex: Male

DRUGS (3)
  1. GLIPIZIDE [Suspect]
     Dosage: 40 MG, 2X/DAY (10 MG FOUR TABLETS TWICE A DAY)
  2. ASPIRIN [Suspect]
     Dosage: 2 DAILY
  3. HYDROCHLOROTHIAZIDE [Suspect]
     Dosage: UNK

REACTIONS (4)
  - FALL [None]
  - POLLAKIURIA [None]
  - DIZZINESS [None]
  - INSOMNIA [None]
